FAERS Safety Report 13233170 (Version 3)
Quarter: 2017Q2

REPORT INFORMATION
  Report Type: Spontaneous
  Country: US (occurrence: US)
  Receive Date: 20170215
  Receipt Date: 20170602
  Transmission Date: 20170830
  Serious: Yes (Other)
  Sender: FDA-Public Use
  Company Number: US-ASTRAZENECA-2017SE13815

PATIENT
  Age: 27864 Day
  Sex: Female
  Weight: 56.2 kg

DRUGS (12)
  1. SERTRALINE [Concomitant]
     Active Substance: SERTRALINE HYDROCHLORIDE
  2. MEGESTROL [Concomitant]
     Active Substance: MEGESTROL
     Dosage: 800 MG/20 ML DAILY
  3. SPIRIVA [Concomitant]
     Active Substance: TIOTROPIUM BROMIDE MONOHYDRATE
     Dosage: 2.5 MCG/ACTUATION SOLUTION FOR INHALATION DAILY
  4. NEXIUM [Suspect]
     Active Substance: ESOMEPRAZOLE MAGNESIUM
     Route: 048
     Dates: start: 20150216
  5. ADVAIR HFA [Concomitant]
     Active Substance: FLUTICASONE PROPIONATE\SALMETEROL XINAFOATE
     Dosage: 100 MCG-50 MCG/DOSE POWDER FOR INHALATION,TWICE A DAY.
  6. PRAVASTATIN. [Concomitant]
     Active Substance: PRAVASTATIN
  7. FLUTICASONE. [Concomitant]
     Active Substance: FLUTICASONE
  8. AMLODIPINE [Concomitant]
     Active Substance: AMLODIPINE BESYLATE
  9. VITAMIN D [Concomitant]
     Active Substance: CHOLECALCIFEROL
  10. LORATADINE. [Concomitant]
     Active Substance: LORATADINE
  11. NEXIUM [Suspect]
     Active Substance: ESOMEPRAZOLE MAGNESIUM
     Route: 048
     Dates: start: 200604, end: 201511
  12. LISINOPRIL AND HYDROCHLOROTHIAZIDE [Concomitant]
     Active Substance: HYDROCHLOROTHIAZIDE\LISINOPRIL

REACTIONS (3)
  - Renal impairment [Unknown]
  - Renal injury [Unknown]
  - Chronic kidney disease [Unknown]

NARRATIVE: CASE EVENT DATE: 20150317
